FAERS Safety Report 14479486 (Version 1)
Quarter: 2018Q1

REPORT INFORMATION
  Report Type: Spontaneous
  Country: US (occurrence: US)
  Receive Date: 20180201
  Receipt Date: 20180201
  Transmission Date: 20180509
  Serious: Yes (Other)
  Sender: FDA-Public Use
  Company Number: None

PATIENT
  Age: 63 Year
  Sex: Female

DRUGS (1)
  1. MAVYRET [Suspect]
     Active Substance: GLECAPREVIR\PIBRENTASVIR
     Indication: HEPATITIS C
     Dosage: BY MOUTH WITH FOOD
     Route: 048
     Dates: start: 20180126, end: 20180130

REACTIONS (6)
  - Chromaturia [None]
  - Drug dose omission [None]
  - Pneumonia [None]
  - Headache [None]
  - Infection [None]
  - Dehydration [None]
